FAERS Safety Report 10494979 (Version 1)
Quarter: 2014Q3

REPORT INFORMATION
  Report Type: Spontaneous
  Country: US (occurrence: None)
  Receive Date: 20140815
  Receipt Date: 20140815
  Transmission Date: 20150326
  Serious: Yes (Other)
  Sender: FDA-Public Use
  Company Number: ADR-2014-00302

PATIENT
  Age: 37 Year
  Sex: Male

DRUGS (2)
  1. BACLOFEN INTRATHECAL [Suspect]
     Active Substance: BACLOFEN
     Indication: MUSCLE SPASTICITY
  2. LIDOCAINE INTRATHECAL [Suspect]
     Active Substance: LIDOCAINE

REACTIONS (4)
  - Back pain [None]
  - Drug withdrawal syndrome [None]
  - Hyperhidrosis [None]
  - Underdose [None]
